FAERS Safety Report 11767429 (Version 4)
Quarter: 2016Q1

REPORT INFORMATION
  Report Type: Report from Study
  Country: US (occurrence: US)
  Receive Date: 20151123
  Receipt Date: 20160113
  Transmission Date: 20160525
  Serious: Yes (Other)
  Sender: FDA-Public Use
  Company Number: US-BAYER-2015-467921

PATIENT
  Age: 70 Year
  Sex: Male

DRUGS (2)
  1. NEXAVAR [Suspect]
     Active Substance: SORAFENIB
     Indication: HEPATOCELLULAR CARCINOMA
     Dosage: 800 MG, QD
     Route: 048
     Dates: start: 201501, end: 2015
  2. NEXAVAR [Suspect]
     Active Substance: SORAFENIB
     Indication: HEPATOCELLULAR CARCINOMA
     Dosage: 600 MG, QD
     Route: 048
     Dates: start: 201501

REACTIONS (11)
  - Dry skin [None]
  - Adverse drug reaction [None]
  - Platelet count decreased [None]
  - Hypoaesthesia [None]
  - Rash pruritic [None]
  - Diarrhoea [Recovering/Resolving]
  - Scratch [None]
  - Wound haemorrhage [None]
  - Diarrhoea [Recovering/Resolving]
  - Pneumonia [Recovering/Resolving]
  - Medication error [None]

NARRATIVE: CASE EVENT DATE: 2015
